FAERS Safety Report 20965288 (Version 2)
Quarter: 2022Q2

REPORT INFORMATION
  Report Type: Report from Study
  Country: US (occurrence: US)
  Receive Date: 20220616
  Receipt Date: 20220629
  Transmission Date: 20220721
  Serious: Yes (Hospitalization, Other)
  Sender: FDA-Public Use
  Company Number: US-GILEAD-2022-0585502

PATIENT
  Sex: Male

DRUGS (10)
  1. AZTREONAM LYSINE [Suspect]
     Active Substance: AZTREONAM LYSINE
     Indication: Cystic fibrosis lung
     Dosage: 75 MG, TID 2 WEEKS ON AND 2 WEEKS OFF EACH MONTH
     Route: 055
     Dates: start: 202110
  2. AZTREONAM LYSINE [Suspect]
     Active Substance: AZTREONAM LYSINE
     Indication: Cystic fibrosis gastrointestinal disease
  3. TOBI [Concomitant]
     Active Substance: TOBRAMYCIN
  4. ZENPEP [Concomitant]
     Active Substance: PANCRELIPASE AMYLASE\PANCRELIPASE LIPASE\PANCRELIPASE PROTEASE
  5. FLOVENT [Concomitant]
     Active Substance: FLUTICASONE PROPIONATE
  6. SODIUM CHLORIDE [Concomitant]
     Active Substance: SODIUM CHLORIDE
  7. ALBUTEROL [Concomitant]
     Active Substance: ALBUTEROL
  8. VITAMIN D3 [Concomitant]
     Active Substance: CHOLECALCIFEROL
  9. PANTOPRAZOLE [Concomitant]
     Active Substance: PANTOPRAZOLE
  10. AZITHROMYCIN [Concomitant]
     Active Substance: AZITHROMYCIN

REACTIONS (2)
  - Cystic fibrosis [Recovered/Resolved]
  - Off label use [Not Recovered/Not Resolved]
